FAERS Safety Report 4411416-1 (Version None)
Quarter: 2004Q3

REPORT INFORMATION
  Report Type: 
  Country: None (occurrence: None)
  Receive Date: 20040727
  Receipt Date: 20040715
  Transmission Date: 20050211
  Serious: Yes (Hospitalization)
  Sender: FDA-Public Use
  Company Number: 2004045593

PATIENT
  Age: 32 Year
  Sex: Female
  Weight: 34.5 kg

DRUGS (3)
  1. ZITHROMAX [Suspect]
     Indication: PYREXIA
     Dosage: 500 MG (500 MG, 1 IN 1 D) ORAL
     Route: 048
     Dates: start: 20040629, end: 20040630
  2. ACETAMINOPHEN [Suspect]
     Indication: PYREXIA
     Dosage: 400 MG (400 MG 1 IN 1 D) ORAL
     Route: 048
     Dates: start: 20040629, end: 20040630
  3. METOCLOPRAMIDE [Concomitant]

REACTIONS (5)
  - ALANINE AMINOTRANSFERASE INCREASED [None]
  - ASPARTATE AMINOTRANSFERASE INCREASED [None]
  - GAMMA-GLUTAMYLTRANSFERASE INCREASED [None]
  - GASTROENTERITIS [None]
  - NASOPHARYNGITIS [None]
